FAERS Safety Report 13058033 (Version 2)
Quarter: 2018Q2

REPORT INFORMATION
  Report Type: Report from Study
  Country: BR (occurrence: BR)
  Receive Date: 20161223
  Receipt Date: 20180618
  Transmission Date: 20180711
  Serious: Yes (Hospitalization, Other)
  Sender: FDA-Public Use
  Company Number: PHHY2016BR176043

PATIENT
  Age: 66 Year
  Sex: Female
  Weight: 62 kg

DRUGS (1)
  1. ACLASTA [Suspect]
     Active Substance: ZOLEDRONIC ACID
     Indication: OSTEOPOROSIS
     Dosage: 5 MG, Q12MO
     Route: 042
     Dates: start: 2016

REACTIONS (13)
  - Cerebrovascular accident [Unknown]
  - Influenza [Unknown]
  - Pneumonia [Unknown]
  - Lower limb fracture [Recovered/Resolved]
  - Hypokinesia [Unknown]
  - Fatigue [Unknown]
  - Nasopharyngitis [Unknown]
  - Paralysis [Unknown]
  - Injury [Unknown]
  - Gait disturbance [Unknown]
  - Weight decreased [Unknown]
  - Fall [Unknown]
  - Spinal disorder [Unknown]

NARRATIVE: CASE EVENT DATE: 201611
